FAERS Safety Report 25804293 (Version 1)
Quarter: 2025Q3

REPORT INFORMATION
  Report Type: Spontaneous
  Country: JP (occurrence: JP)
  Receive Date: 20250915
  Receipt Date: 20250915
  Transmission Date: 20251020
  Serious: Yes (Other)
  Sender: PFIZER
  Company Number: JP-PFIZER INC-PV202500108614

PATIENT
  Age: 52 Year
  Sex: Male

DRUGS (3)
  1. INFLIXIMAB [Suspect]
     Active Substance: INFLIXIMAB
     Indication: Psoriasis
     Dosage: 300 MG, DAILY (300 MG/DAY, ADMINISTERED AT INTERVALS RANGING FROM 1 TO 2 MONTHS OVER SEVERAL YEARS)
  2. USTEKINUMAB [Suspect]
     Active Substance: USTEKINUMAB
     Dosage: 90 MG, DAILY (90 MG/DAY, CONTINUED EVERY 2-3 MONTHS)
  3. HYDROCORTISONE [Concomitant]
     Active Substance: HYDROCORTISONE
     Indication: Adrenal insufficiency
     Dosage: 20 MG, DAILY

REACTIONS (2)
  - Aneurysm [Not Recovered/Not Resolved]
  - Off label use [Unknown]
